FAERS Safety Report 4302569-4 (Version None)
Quarter: 2004Q1

REPORT INFORMATION
  Report Type: 
  Country: None (occurrence: None)
  Receive Date: 20040218
  Receipt Date: 20030318
  Transmission Date: 20041129
  Serious: Yes (Other)
  Sender: FDA-Public Use
  Company Number: 03-03-0316

PATIENT
  Age: 62 Year
  Sex: Male
  Weight: 107.5025 kg

DRUGS (2)
  1. HYDROCHLOROTHIAZIDE TAB [Suspect]
     Indication: HYPERTENSION
     Dosage: 25MG QD ORAL
     Route: 048
     Dates: start: 20001004, end: 20021009
  2. TARKA [Concomitant]

REACTIONS (1)
  - GOUT [None]
